FAERS Safety Report 7345270-5 (Version None)
Quarter: 2011Q1

REPORT INFORMATION
  Report Type: 
  Country: None (occurrence: None)
  Receive Date: 20110310
  Receipt Date: 20110301
  Transmission Date: 20110831
  Serious: Yes (Hospitalization)
  Sender: FDA-Public Use
  Company Number: JP-ELI_LILLY_AND_COMPANY-JP201103000813

PATIENT
  Age: 25 Year
  Sex: Male

DRUGS (2)
  1. ZYPREXA [Suspect]
     Dosage: 20 MG, DAILY (1/D)
     Route: 048
     Dates: end: 20110208
  2. VALERIN [Concomitant]
     Dosage: 800 MG, UNK
     Route: 048
     Dates: end: 20110208

REACTIONS (4)
  - PLATELET COUNT DECREASED [None]
  - DRUG ERUPTION [None]
  - LIVER FUNCTION TEST ABNORMAL [None]
  - PYREXIA [None]
